FAERS Safety Report 18211784 (Version 1)
Quarter: 2020Q3

REPORT INFORMATION
  Report Type: Spontaneous
  Country: US (occurrence: US)
  Receive Date: 20200831
  Receipt Date: 20200831
  Transmission Date: 20201103
  Serious: Yes (Other)
  Sender: FDA-Public Use
  Company Number: US-CIPLA LTD.-2020US06022

PATIENT

DRUGS (7)
  1. METFORMIN [Concomitant]
     Active Substance: METFORMIN HYDROCHLORIDE
     Indication: DIABETES MELLITUS
     Dosage: 1000 MILLIGRAM, BID (TWICE A DAY) (5 YEARS)
     Route: 065
  2. OMEPRAZOLE. [Concomitant]
     Active Substance: OMEPRAZOLE
     Indication: GASTROOESOPHAGEAL REFLUX DISEASE
     Dosage: 20 MILLIGRAM, QD (ONCE A DAY) (10 YEARS)
     Route: 065
  3. PRAVASTATIN. [Concomitant]
     Active Substance: PRAVASTATIN
     Indication: BLOOD CHOLESTEROL ABNORMAL
     Dosage: 10 MILLIGRAM, QD (EVERY DAY), 10 YEARS
     Route: 065
  4. LISINOPRIL. [Concomitant]
     Active Substance: LISINOPRIL
     Indication: BLOOD PRESSURE ABNORMAL
     Dosage: 10 MILLIGRAM, QD (ONCE A DAY) (15 YEARS)
     Route: 065
  5. NADOLOL. [Suspect]
     Active Substance: NADOLOL
     Indication: HYPERTENSION
     Dosage: UNK, 20 MG (OVER 15 YEARS)
     Route: 065
  6. NADOLOL. [Suspect]
     Active Substance: NADOLOL
     Dosage: 10 MILLIGRAM, QD
     Route: 048
     Dates: start: 202001
  7. AMLODIPINE [Concomitant]
     Active Substance: AMLODIPINE BESYLATE
     Indication: HYPERTENSION
     Dosage: 5 MILLIGRAM, QD (ONCE A DAY) (4 OR 5 YEARS)
     Route: 065

REACTIONS (4)
  - Product prescribing error [Unknown]
  - Wrong technique in product usage process [Unknown]
  - Hypertension [Unknown]
  - Underdose [Unknown]

NARRATIVE: CASE EVENT DATE: 202001
